FAERS Safety Report 4617739-5 (Version None)
Quarter: 2005Q1

REPORT INFORMATION
  Report Type: 
  Country: None (occurrence: None)
  Receive Date: 20050322
  Receipt Date: 20050311
  Transmission Date: 20050727
  Serious: Yes (Life-Threatening, Hospitalization)
  Sender: FDA-Public Use
  Company Number: 6013556

PATIENT
  Age: 90 Year
  Sex: Female

DRUGS (3)
  1. CARDENSIEL                  (BISOPROLOL) [Suspect]
     Dosage: 1 DOSAGE FORMS (1 DOSAGE FORMS, 1 IN 1 D) ORAL
     Route: 048
     Dates: start: 20041129, end: 20041222
  2. FRAGMIN [Suspect]
     Dosage: 0,2 ML (0,2 ML, 1 D) SUBCUTANEOUS
     Route: 058
     Dates: start: 20041129, end: 20041223
  3. PLAVIX [Suspect]
     Dosage: 75 MG (75 MG, 1 D) ORAL
     Route: 048
     Dates: start: 20041129, end: 20041221

REACTIONS (4)
  - COAGULATION FACTOR V LEVEL DECREASED [None]
  - GENERAL PHYSICAL HEALTH DETERIORATION [None]
  - HEPATITIS [None]
  - PROTHROMBIN TIME PROLONGED [None]
